FAERS Safety Report 17512367 (Version 2)
Quarter: 2020Q1

REPORT INFORMATION
  Report Type: Spontaneous
  Country: PT (occurrence: PT)
  Receive Date: 20200306
  Receipt Date: 20200330
  Transmission Date: 20200409
  Serious: Yes (Hospitalization, Other)
  Sender: FDA-Public Use
  Company Number: PT-MYLANLABS-2020M1023499

PATIENT
  Age: 54 Year
  Sex: Female

DRUGS (3)
  1. GEMCITABINE. [Suspect]
     Active Substance: GEMCITABINE
     Indication: SYNOVIAL SARCOMA
     Dosage: 1000 MILLIGRAM/SQ. METER, QW,(1000 MG/M2 PER DOSE, DURING HER FOURTH CYCLE)
     Route: 065
     Dates: start: 2018
  2. PACLITAXEL. [Suspect]
     Active Substance: PACLITAXEL
     Indication: SYNOVIAL SARCOMA
     Dosage: UNK
  3. GEMCITABINE. [Suspect]
     Active Substance: GEMCITABINE
     Indication: SYNOVIAL SARCOMA RECURRENT
     Dosage: 1000 MILLIGRAM/SQ. METER, QW
     Route: 065

REACTIONS (5)
  - Thrombotic microangiopathy [Recovered/Resolved]
  - Sepsis [Unknown]
  - Off label use [Unknown]
  - Pancytopenia [Unknown]
  - Product use in unapproved indication [Unknown]

NARRATIVE: CASE EVENT DATE: 2018
